FAERS Safety Report 7993941-X (Version None)
Quarter: 2011Q4

REPORT INFORMATION
  Report Type: 
  Country: None (occurrence: None)
  Receive Date: 20111215
  Receipt Date: 20111209
  Transmission Date: 20120403
  Serious: Yes (Hospitalization)
  Sender: FDA-Public Use
  Company Number: IPC201112-003252

PATIENT
  Age: 61 Year
  Sex: Male

DRUGS (16)
  1. ATENOLOL [Suspect]
     Dosage: 75 MG
  2. AMLODIPINE [Suspect]
     Dosage: 7.5 MG
  3. TEICOPLANIN [Suspect]
     Indication: SEPSIS
  4. ARTEETHER [Suspect]
     Dosage: 150 MG ONCE, DAILY
  5. AMILORIDE HYDROCHLORIDE [Suspect]
     Dosage: 40 MG
  6. CEFTRIAXONE [Suspect]
     Indication: SEPSIS
  7. MEROPENEM [Suspect]
     Indication: SEPSIS
  8. METOLAZONE [Suspect]
     Dosage: 5 MG ONCE DAILY
  9. TIGECYCLINE [Suspect]
     Indication: SEPSIS
     Dosage: 50 MG TWO TIMES DAILY
  10. TORSEMIDE [Suspect]
     Dosage: 20 MG TWO TIMES DAILY
  11. CEFOTAXIME [Suspect]
     Indication: SEPSIS
     Dosage: 1 G TWO TIMES DAILY
  12. DORIPENEM MONOHYDRATE [Suspect]
     Indication: SEPSIS
     Dosage: 250 MG TWO TIMES DAILY
  13. FUROSEMIDE [Suspect]
     Dosage: 40 MG TWO TIMES DAILY
  14. TAZOBACTAM [Suspect]
     Indication: SEPSIS
  15. ASPIRIN [Suspect]
     Dosage: 50 MG ONCE DAILY
  16. CASPOFUNGIN ACETATE [Suspect]
     Indication: SEPSIS
     Dosage: 50 MG ONCE DAILY

REACTIONS (9)
  - SEPSIS [None]
  - HICCUPS [None]
  - NO THERAPEUTIC RESPONSE [None]
  - DYSPNOEA [None]
  - RESPIRATORY RATE INCREASED [None]
  - HAEMODIALYSIS [None]
  - RENAL FAILURE ACUTE [None]
  - CONFUSIONAL STATE [None]
  - PALLOR [None]
